FAERS Safety Report 9109232 (Version 1)
Quarter: 2013Q1

REPORT INFORMATION
  Report Type: Spontaneous
  Country: US (occurrence: US)
  Receive Date: 20130222
  Receipt Date: 20130222
  Transmission Date: 20140127
  Serious: Yes (Other)
  Sender: FDA-Public Use
  Company Number: US-ABBOTT-13P-163-1052060-00

PATIENT
  Age: 65 None
  Sex: Female
  Weight: 156.63 kg

DRUGS (15)
  1. HUMIRA PEN [Suspect]
     Indication: RHEUMATOID ARTHRITIS
     Dates: start: 2009, end: 201108
  2. HUMIRA PEN [Suspect]
     Dates: start: 201204, end: 201206
  3. HUMIRA PEN [Suspect]
     Dates: start: 2012
  4. VICODIN 5/500 [Suspect]
     Indication: PAIN
     Dosage: 5MG/500MG
  5. COREG [Concomitant]
     Indication: HYPERTENSION
  6. LASIX [Concomitant]
     Indication: HYPERTENSION
  7. LOSARTAN [Concomitant]
     Indication: HYPERTENSION
  8. SYNTHROID [Concomitant]
     Indication: HYPOTHYROIDISM
  9. XANAX [Concomitant]
     Indication: PANIC ATTACK
  10. PREDNISONE [Concomitant]
     Indication: RHEUMATOID ARTHRITIS
  11. METHOTREXATE [Concomitant]
     Indication: RHEUMATOID ARTHRITIS
  12. PRAVASTATIN [Concomitant]
     Indication: BLOOD CHOLESTEROL INCREASED
  13. LANTUS [Concomitant]
     Indication: DIABETES MELLITUS
  14. NOVOLOG [Concomitant]
     Indication: DIABETES MELLITUS
  15. SPIRONOLACTONE [Concomitant]
     Indication: HYPERTENSION

REACTIONS (20)
  - Breast discharge [Recovered/Resolved]
  - Nipple exudate bloody [Recovered/Resolved]
  - Intraductal papilloma of breast [Recovered/Resolved]
  - Breast mass [Recovered/Resolved]
  - Breast cancer [Recovered/Resolved]
  - Papilloma [Recovered/Resolved]
  - Therapeutic response unexpected [Recovered/Resolved]
  - Arthralgia [Not Recovered/Not Resolved]
  - Pain in extremity [Not Recovered/Not Resolved]
  - Myalgia [Not Recovered/Not Resolved]
  - Paraesthesia [Not Recovered/Not Resolved]
  - Fatigue [Not Recovered/Not Resolved]
  - Drug ineffective [Not Recovered/Not Resolved]
  - Urinary tract infection [Recovered/Resolved]
  - Arthralgia [Recovered/Resolved]
  - Joint stiffness [Recovered/Resolved]
  - Red blood cell sedimentation rate increased [Unknown]
  - Rheumatoid factor increased [Unknown]
  - Anti-cyclic citrullinated peptide antibody [Unknown]
  - Urinary tract infection [Recovered/Resolved]
